FAERS Safety Report 13748879 (Version 1)
Quarter: 2017Q3

REPORT INFORMATION
  Report Type: Spontaneous
  Country: CN (occurrence: CN)
  Receive Date: 20170713
  Receipt Date: 20170713
  Transmission Date: 20171127
  Serious: Yes (Other)
  Sender: FDA-Public Use
  Company Number: CN-BAXTER-2017BAX027386

PATIENT
  Age: 37 Year
  Sex: Female
  Weight: 48 kg

DRUGS (1)
  1. 20% MANNITOL INJECTION [Suspect]
     Active Substance: MANNITOL
     Indication: SPINAL OSTEOARTHRITIS
     Route: 041
     Dates: start: 20170405, end: 20170405

REACTIONS (1)
  - Macule [Recovered/Resolved]

NARRATIVE: CASE EVENT DATE: 20170405
